FAERS Safety Report 7980382-4 (Version None)
Quarter: 2011Q4

REPORT INFORMATION
  Report Type: 
  Country: None (occurrence: None)
  Receive Date: 20111214
  Receipt Date: 20111208
  Transmission Date: 20120403
  Serious: Yes (Other)
  Sender: FDA-Public Use
  Company Number: CA-SANOFI-AVENTIS-2011SA080616

PATIENT
  Age: 42 Year
  Sex: Male
  Weight: 86.2 kg

DRUGS (24)
  1. VITAMIN D [Concomitant]
     Dosage: DOSE:1000 UNIT(S)
     Route: 065
  2. GABAPENTIN [Concomitant]
     Indication: BACK PAIN
     Route: 065
  3. PREDNISONE TAB [Suspect]
     Route: 065
     Dates: start: 20090101
  4. PROGRAF [Concomitant]
     Route: 065
     Dates: start: 20091001
  5. SEPTRA [Concomitant]
     Indication: INFECTION PROPHYLAXIS
     Dosage: 400MG/80MG
  6. MULTI-VITAMINS [Concomitant]
     Route: 065
  7. ATORVASTATIN [Concomitant]
     Route: 065
  8. FOLIC ACID [Concomitant]
     Route: 065
  9. ASCORBIC ACID [Concomitant]
     Route: 065
  10. CLONAZEPAM [Concomitant]
     Route: 065
  11. FOSAMAX [Concomitant]
     Route: 065
     Dates: start: 20091001
  12. LOVENOX [Suspect]
     Route: 058
  13. BISOPROLOL FUMARATE [Concomitant]
     Route: 065
  14. VITAMIN B-12 [Concomitant]
     Route: 065
  15. GABAPENTIN [Concomitant]
     Route: 065
  16. EPOGEN [Concomitant]
     Dosage: DOSE:8000 UNIT(S)
     Route: 065
  17. PANTOPRAZOLE [Concomitant]
     Route: 065
  18. GLICLAZIDE [Concomitant]
     Route: 065
  19. LOVENOX [Suspect]
     Route: 058
     Dates: start: 20070420
  20. MYCOPHENOLATE MOFETIL (CELLCEPT) [Concomitant]
     Route: 065
  21. VITAMIN B6 [Concomitant]
     Route: 065
  22. SOTALOL HCL [Concomitant]
     Route: 065
  23. FOSAMAX [Concomitant]
     Route: 065
     Dates: end: 20091001
  24. CALCIUM [Concomitant]
     Route: 065

REACTIONS (4)
  - CALCINOSIS [None]
  - DEVICE DEPOSIT ISSUE [None]
  - ARTHRALGIA [None]
  - BONE LOSS [None]
